FAERS Safety Report 5167502-4 (Version None)
Quarter: 2006Q4

REPORT INFORMATION
  Report Type: 
  Country: None (occurrence: None)
  Receive Date: 20061130
  Receipt Date: 20061113
  Transmission Date: 20070319
  Serious: Yes (Hospitalization)
  Sender: FDA-Public Use
  Company Number: CIP06002789

PATIENT
  Age: 69 Year
  Sex: Female

DRUGS (7)
  1. ACTONEL [Suspect]
     Indication: OSTEOPOROSIS
     Dosage: 2.5 MG DAILY, ORAL
     Route: 048
     Dates: start: 20060601, end: 20060913
  2. GASTER (OMEPRAZOLE) [Concomitant]
  3. ETODOLAC [Concomitant]
  4. VOLTAREN [Concomitant]
  5. DEPAS (ETIZOLAM) [Concomitant]
  6. FERROMIA [Concomitant]
  7. METHYLCOBAL [Concomitant]

REACTIONS (1)
  - LIVER DISORDER [None]
